FAERS Safety Report 6600560-6 (Version None)
Quarter: 2010Q1

REPORT INFORMATION
  Report Type: 
  Country: None (occurrence: None)
  Receive Date: 20100223
  Receipt Date: 20100223
  Transmission Date: 20100710
  Serious: Yes (Hospitalization)
  Sender: FDA-Public Use
  Company Number: None

PATIENT
  Sex: Female
  Weight: 68 kg

DRUGS (3)
  1. CARBOPLATIN [Suspect]
     Dosage: 579 MG
     Dates: end: 20100211
  2. TAXOTERE [Suspect]
     Dosage: 130 MG
     Dates: end: 20100211
  3. TAXOL [Suspect]
     Dosage: 0 MG

REACTIONS (3)
  - NEUTROPENIA [None]
  - PYREXIA [None]
  - VIRAL UPPER RESPIRATORY TRACT INFECTION [None]
